FAERS Safety Report 8740224 (Version 7)
Quarter: 2015Q2

REPORT INFORMATION
  Report Type: Report from Study
  Country: BR (occurrence: BR)
  Receive Date: 20120823
  Receipt Date: 20150403
  Transmission Date: 20150821
  Serious: Yes (Hospitalization, Other)
  Sender: FDA-Public Use
  Company Number: BR-ROCHE-1000854

PATIENT
  Age: 64 Year
  Sex: Female
  Weight: 59 kg

DRUGS (25)
  1. MABTHERA [Suspect]
     Active Substance: RITUXIMAB
     Route: 042
     Dates: start: 20111208
  2. MABTHERA [Suspect]
     Active Substance: RITUXIMAB
     Route: 042
     Dates: start: 201403
  3. PARIET [Concomitant]
     Active Substance: RABEPRAZOLE SODIUM
  4. HUMIRA [Concomitant]
     Active Substance: ADALIMUMAB
  5. DEPURA [Concomitant]
     Active Substance: CHOLECALCIFEROL
  6. MABTHERA [Suspect]
     Active Substance: RITUXIMAB
     Route: 042
     Dates: start: 201404, end: 20140414
  7. BENICAR [Concomitant]
     Active Substance: OLMESARTAN MEDOXOMIL
  8. MABTHERA [Suspect]
     Active Substance: RITUXIMAB
     Route: 042
     Dates: start: 20101007
  9. LASIX [Concomitant]
     Active Substance: FUROSEMIDE
  10. MABTHERA [Suspect]
     Active Substance: RITUXIMAB
     Route: 042
     Dates: start: 201201
  11. ASCORBIC ACID. [Concomitant]
     Active Substance: ASCORBIC ACID
  12. FORTEO [Concomitant]
     Active Substance: TERIPARATIDE
  13. MABTHERA [Suspect]
     Active Substance: RITUXIMAB
     Route: 042
     Dates: start: 201004
  14. METHOTREXATE [Concomitant]
     Active Substance: METHOTREXATE
     Route: 065
  15. FOLIC ACID. [Concomitant]
     Active Substance: FOLIC ACID
  16. MABTHERA [Suspect]
     Active Substance: RITUXIMAB
     Route: 042
     Dates: start: 20101026
  17. FOLIC ACID. [Concomitant]
     Active Substance: FOLIC ACID
  18. OLMETEC [Concomitant]
     Active Substance: OLMESARTAN MEDOXOMIL
  19. XARELTO [Concomitant]
     Active Substance: RIVAROXABAN
     Indication: ILL-DEFINED DISORDER
  20. MABTHERA [Suspect]
     Active Substance: RITUXIMAB
     Indication: RHEUMATOID ARTHRITIS
     Dosage: HER LATEST DOSE WAS ON 08/DEC/2011,
     Route: 042
     Dates: start: 20100301
  21. ACTONEL [Concomitant]
     Active Substance: RISEDRONATE SODIUM
  22. RANITIDINE [Concomitant]
     Active Substance: RANITIDINE\RANITIDINE HYDROCHLORIDE
  23. ARAVA [Concomitant]
     Active Substance: LEFLUNOMIDE
  24. FOSAMAX [Concomitant]
     Active Substance: ALENDRONATE SODIUM
  25. DAFLON [Concomitant]
     Active Substance: DIOSMIN\HESPERIDIN

REACTIONS (21)
  - Tooth socket haemorrhage [Not Recovered/Not Resolved]
  - Mucosal inflammation [Unknown]
  - Body height increased [Unknown]
  - Pain [Unknown]
  - Wound [Recovering/Resolving]
  - Choking sensation [Unknown]
  - Impaired healing [Recovered/Resolved]
  - Gingival bleeding [Not Recovered/Not Resolved]
  - Disease progression [Unknown]
  - Umbilical haemorrhage [Not Recovered/Not Resolved]
  - Rheumatoid arthritis [Unknown]
  - Arthropathy [Unknown]
  - Cellulitis [Unknown]
  - Hyperkeratosis [Unknown]
  - Joint injury [Unknown]
  - Cataract [Not Recovered/Not Resolved]
  - Body height decreased [Recovered/Resolved]
  - Influenza [Not Recovered/Not Resolved]
  - Epistaxis [Not Recovered/Not Resolved]
  - Erysipelas [Unknown]
  - Dyspnoea [Unknown]

NARRATIVE: CASE EVENT DATE: 201206
